FAERS Safety Report 8829848 (Version 1)
Quarter: 2012Q4

REPORT INFORMATION
  Report Type: 
  Country: US (occurrence: US)
  Receive Date: 20121008
  Receipt Date: 20121008
  Transmission Date: 20130627
  Serious: Yes (Other)
  Sender: FDA-Public Use
  Company Number: US-B.I. PHARMACEUTICALS,INC./RIDGEFIELD-2012-BP-23912BP

PATIENT
  Sex: Male
  Weight: 78 kg

DRUGS (3)
  1. DULCOLAX STOOL SOFTENER [Suspect]
     Indication: FAECES HARD
     Route: 048
     Dates: start: 2002
  2. DULCOLAX TABLETS [Suspect]
     Indication: CONSTIPATION
     Route: 048
     Dates: start: 2002
  3. DILTIAZEM [Concomitant]
     Dosage: 180 mg
     Route: 048

REACTIONS (2)
  - Cerebrovascular accident [Not Recovered/Not Resolved]
  - Amnesia [Not Recovered/Not Resolved]
